FAERS Safety Report 7941054-5 (Version None)
Quarter: 2011Q4

REPORT INFORMATION
  Report Type: 
  Country: None (occurrence: None)
  Receive Date: 20111128
  Receipt Date: 20111123
  Transmission Date: 20120403
  Serious: Yes (Hospitalization, Other)
  Sender: FDA-Public Use
  Company Number: US-PFIZER INC-2011191779

PATIENT
  Sex: Male

DRUGS (2)
  1. LYRICA [Suspect]
     Indication: CONVULSION
     Dosage: UNK
     Dates: start: 20090101
  2. TEGRETOL [Suspect]
     Dosage: UNK

REACTIONS (1)
  - KNEE ARTHROPLASTY [None]
